FAERS Safety Report 17749343 (Version 4)
Quarter: 2021Q2

REPORT INFORMATION
  Report Type: Report from Study
  Country: US (occurrence: US)
  Receive Date: 20200506
  Receipt Date: 20210424
  Transmission Date: 20210716
  Serious: Yes (Other)
  Sender: FDA-Public Use
  Company Number: NVSC2020US121906

PATIENT
  Age: 82 Year
  Sex: Male

DRUGS (2)
  1. ENTRESTO [Suspect]
     Active Substance: SACUBITRIL\VALSARTAN
     Indication: CARDIAC FAILURE CHRONIC
     Dosage: 1 DF, BID
     Route: 048
     Dates: start: 202001
  2. WATER PILLS [Concomitant]
     Active Substance: UNSPECIFIED INGREDIENT
     Indication: PRODUCT USED FOR UNKNOWN INDICATION
     Dosage: UNK
     Route: 065

REACTIONS (7)
  - Joint dislocation [Unknown]
  - Hypotension [Recovering/Resolving]
  - Myocardial infarction [Unknown]
  - Musculoskeletal discomfort [Unknown]
  - Peripheral swelling [Unknown]
  - Gait inability [Unknown]
  - Erythema [Unknown]

NARRATIVE: CASE EVENT DATE: 202001
